FAERS Safety Report 7487192-5 (Version None)
Quarter: 2011Q2

REPORT INFORMATION
  Report Type: 
  Country: None (occurrence: None)
  Receive Date: 20110518
  Receipt Date: 20110414
  Transmission Date: 20111010
  Serious: Yes (Hospitalization, Other)
  Sender: FDA-Public Use
  Company Number: US-BAYER-201029603NA

PATIENT
  Age: 20 Year
  Sex: Female
  Weight: 123.81 kg

DRUGS (10)
  1. ACETAMINOPHEN AND HYDROCODONE BITARTRATE [Concomitant]
     Dosage: UNK UNK, PRN
     Route: 048
  2. ALBUTEROL [Concomitant]
     Dosage: 0.83 MG/ML, UNK
  3. MEDROPROGESTERONE (CONTRACEP) [Concomitant]
     Dosage: 150 MG/ML, UNK
  4. YASMIN [Suspect]
     Indication: PRODUCT USED FOR UNKNOWN INDICATION
  5. PHENYLEPHRINE-GUAIFENESIN 30 [Concomitant]
     Dosage: 600 MG, UNK
     Route: 048
  6. YAZ [Suspect]
     Indication: PRODUCT USED FOR UNKNOWN INDICATION
  7. DOXYCYCLINE [Concomitant]
     Dosage: UNK UNK, BID
     Route: 048
  8. CHERATUSSIN AC [Concomitant]
     Dosage: 20 MG/ML, UNK
     Route: 048
  9. PROAIR HFA 90 [Concomitant]
  10. AZITHROMYCIN [Concomitant]
     Dosage: 500 MG, QD
     Route: 048

REACTIONS (5)
  - NEPHROLITHIASIS [None]
  - GALLBLADDER NON-FUNCTIONING [None]
  - CHOLELITHIASIS [None]
  - NEPHROPATHY [None]
  - ORGAN FAILURE [None]
